FAERS Safety Report 18779343 (Version 1)
Quarter: 2021Q1

REPORT INFORMATION
  Report Type: Report from Study
  Country: US (occurrence: US)
  Receive Date: 20210125
  Receipt Date: 20210125
  Transmission Date: 20210419
  Serious: Yes (Hospitalization)
  Sender: FDA-Public Use
  Company Number: US-GILEAD-2021-0513871

PATIENT
  Age: 57 Year
  Sex: Female

DRUGS (14)
  1. PROTONIX [OMEPRAZOLE] [Concomitant]
     Active Substance: OMEPRAZOLE
  2. METOLAZONE. [Concomitant]
     Active Substance: METOLAZONE
  3. QUETIAPINE. [Concomitant]
     Active Substance: QUETIAPINE
  4. CYCLOBENZAPRINE. [Concomitant]
     Active Substance: CYCLOBENZAPRINE
  5. HYDROMORPHONE [Concomitant]
     Active Substance: HYDROMORPHONE
  6. DULOXETINE. [Concomitant]
     Active Substance: DULOXETINE
  7. SPIRONOLACTON [Concomitant]
     Active Substance: SPIRONOLACTONE
  8. ASPIRIN (E.C.) [Concomitant]
     Active Substance: ASPIRIN
  9. BUMEX [Concomitant]
     Active Substance: BUMETANIDE
  10. LAMOTRIGINE. [Concomitant]
     Active Substance: LAMOTRIGINE
  11. ADCIRCA [Concomitant]
     Active Substance: TADALAFIL
  12. AMBRISENTAN [Suspect]
     Active Substance: AMBRISENTAN
     Indication: PULMONARY ARTERIAL HYPERTENSION
     Dosage: 5 MG, QD
     Route: 065
     Dates: start: 20200107
  13. POTASSIUM CHLORIDE. [Concomitant]
     Active Substance: POTASSIUM CHLORIDE
  14. JANUVIA [Concomitant]
     Active Substance: SITAGLIPTIN PHOSPHATE

REACTIONS (1)
  - Carpal tunnel syndrome [Recovered/Resolved]
